FAERS Safety Report 16701159 (Version 2)
Quarter: 2019Q4

REPORT INFORMATION
  Report Type: Spontaneous
  Country: DE (occurrence: DE)
  Receive Date: 20190814
  Receipt Date: 20191014
  Transmission Date: 20200122
  Serious: Yes (Hospitalization)
  Sender: FDA-Public Use
  Company Number: DE-ABBVIE-19K-062-2885509-00

PATIENT
  Sex: Male
  Weight: 79 kg

DRUGS (3)
  1. HUMIRA [Suspect]
     Active Substance: ADALIMUMAB
     Indication: PSORIASIS
     Dosage: DRUG START DATE - MORE THAN 3 YEARS AGO
     Route: 058
     Dates: start: 2016
  2. NOVALGIN [Concomitant]
     Indication: PRODUCT USED FOR UNKNOWN INDICATION
  3. IBUPROFEN. [Concomitant]
     Active Substance: IBUPROFEN
     Indication: HEADACHE

REACTIONS (13)
  - Atrial fibrillation [Unknown]
  - Respiratory tract infection [Unknown]
  - Multifocal motor neuropathy [Unknown]
  - Musculoskeletal pain [Unknown]
  - Hereditary neuropathy with liability to pressure palsies [Unknown]
  - Asthenia [Unknown]
  - Polyneuropathy [Unknown]
  - Epicondylitis [Unknown]
  - Pain in extremity [Unknown]
  - Pain in extremity [Unknown]
  - Headache [Not Recovered/Not Resolved]
  - Anti-myelin-associated glycoprotein associated polyneuropathy [Unknown]
  - Winged scapula [Unknown]

NARRATIVE: CASE EVENT DATE: 2019
